FAERS Safety Report 11271251 (Version 1)
Quarter: 2015Q3

REPORT INFORMATION
  Report Type: Spontaneous
  Country: GB (occurrence: GB)
  Receive Date: 20150714
  Receipt Date: 20150714
  Transmission Date: 20151125
  Serious: Yes (Death, Other)
  Sender: FDA-Public Use
  Company Number: PHHY2015GB083359

PATIENT
  Sex: Male

DRUGS (1)
  1. FLUORESCEINE [Suspect]
     Active Substance: FLUORESCEIN SODIUM
     Indication: ANGIOGRAM
     Dosage: UNK
     Route: 065
     Dates: start: 20150526

REACTIONS (2)
  - Death [Fatal]
  - Malaise [Not Recovered/Not Resolved]

NARRATIVE: CASE EVENT DATE: 20150526
